FAERS Safety Report 8290075 (Version 6)
Quarter: 2013Q1

REPORT INFORMATION
  Report Type: Spontaneous
  Country: US (occurrence: US)
  Receive Date: 20111214
  Receipt Date: 20130131
  Transmission Date: 20140127
  Serious: Yes (Hospitalization, Congenital Anomaly, Other)
  Sender: FDA-Public Use
  Company Number: US-PFIZER INC-2011300802

PATIENT
  Sex: Male
  Weight: 4 kg

DRUGS (16)
  1. ZOLOFT [Suspect]
     Indication: DEPRESSION
     Dosage: 100MG HALF TABLET DAILY
     Route: 064
     Dates: start: 1995
  2. ZOLOFT [Suspect]
     Dosage: 100 MG, 1X/DAY
     Route: 064
     Dates: start: 1995, end: 1998
  3. ZOLOFT [Suspect]
     Dosage: 100 MG, 1X/DAY
     Route: 064
     Dates: start: 20020102, end: 20050506
  4. Z-PAK [Concomitant]
     Dosage: UNK
     Route: 064
  5. PRENATAL VITAMINS [Concomitant]
     Dosage: UNK
     Route: 064
  6. AMOXICILLIN [Concomitant]
     Dosage: UNK
     Route: 064
  7. MUCO-FEN-1200 [Concomitant]
     Dosage: UNK
     Route: 064
  8. IBUPROFEN [Concomitant]
     Dosage: UNK
     Route: 064
  9. NAPROXEN SODIUM [Concomitant]
     Dosage: UNK
     Route: 064
  10. OXYTOCIN [Concomitant]
     Dosage: UNK
     Route: 064
  11. ALBUTEROL [Concomitant]
     Dosage: UNK
     Route: 064
  12. ZITHROMAX [Concomitant]
     Dosage: UNK
     Route: 064
  13. ASPIRIN [Concomitant]
     Dosage: UNK
     Route: 064
  14. TYLENOL PM [Concomitant]
     Dosage: UNK
     Route: 064
  15. COLACE [Concomitant]
     Dosage: UNK
     Route: 064
  16. MERUVAX II [Concomitant]
     Dosage: UNK
     Route: 064

REACTIONS (5)
  - Maternal exposure timing unspecified [Unknown]
  - Anal atresia [Unknown]
  - Anal fistula [Unknown]
  - Limb reduction defect [Unknown]
  - Congenital anomaly [Unknown]
